FAERS Safety Report 21508382 (Version 1)
Quarter: 2022Q4

REPORT INFORMATION
  Report Type: Spontaneous
  Country: US (occurrence: None)
  Receive Date: 20221026
  Receipt Date: 20221026
  Transmission Date: 20230113
  Serious: Yes (Life-Threatening, Hospitalization, Other)
  Sender: FDA-Public Use
  Company Number: None

PATIENT
  Age: 38 Year
  Sex: Female

DRUGS (1)
  1. PARAGARD T 380A [Suspect]
     Active Substance: COPPER

REACTIONS (7)
  - Pregnancy with contraceptive device [None]
  - Maternal condition affecting foetus [None]
  - Exposure during pregnancy [None]
  - Depression [None]
  - Caesarean section [None]
  - Respiratory disorder neonatal [None]
  - Maternal drugs affecting foetus [None]

NARRATIVE: CASE EVENT DATE: 20220715
